FAERS Safety Report 9166641 (Version 2)
Quarter: 2014Q2

REPORT INFORMATION
  Report Type: Spontaneous
  Country: None (occurrence: US)
  Receive Date: 20130315
  Receipt Date: 20140203
  Transmission Date: 20141212
  Serious: Yes (Other)
  Sender: FDA-Public Use
  Company Number: US-ALLERGAN-1302092US

PATIENT
  Age: 53 Year
  Sex: Female

DRUGS (1)
  1. BOTOX COSMETIC [Suspect]
     Indication: SKIN WRINKLING
     Dosage: 8 UNITS, SINGLE
     Route: 030
     Dates: start: 20130206, end: 20130206

REACTIONS (7)
  - Suicidal ideation [Unknown]
  - Suicidal ideation [Unknown]
  - Psychological trauma [Unknown]
  - Lid sulcus deepened [Unknown]
  - Facial paresis [Unknown]
  - Eyelid ptosis [Unknown]
  - Eyelid ptosis [Unknown]
